FAERS Safety Report 8871074 (Version 1)
Quarter: 2012Q4

REPORT INFORMATION
  Report Type: 
  Country: US (occurrence: US)
  Receive Date: 20121026
  Receipt Date: 20121026
  Transmission Date: 20130627
  Serious: No
  Sender: FDA-Public Use
  Company Number: US-AMGEN-USASP2012046338

PATIENT
  Age: 61 Year
  Sex: Female
  Weight: 73.47 kg

DRUGS (5)
  1. ENBREL [Suspect]
     Indication: PRODUCT USED FOR UNKNOWN INDICATION
     Dosage: 50 mg, qwk
     Route: 058
  2. LUMIGAN [Concomitant]
     Dosage: 0.03 %, UNK
  3. ZYRTEC [Concomitant]
     Dosage: 10 mg, UNK
  4. DOXYCYCLINE [Concomitant]
     Dosage: 150 mg, UNK
  5. ASPIRIN LOW [Concomitant]
     Dosage: 81 mg, UNK

REACTIONS (2)
  - Breast infection [Unknown]
  - Sinus disorder [Unknown]
